FAERS Safety Report 7767451-9 (Version None)
Quarter: 2011Q3

REPORT INFORMATION
  Report Type: 
  Country: None (occurrence: None)
  Receive Date: 20110922
  Receipt Date: 20100812
  Transmission Date: 20111222
  Serious: No
  Sender: FDA-Public Use
  Company Number: US-ASTRAZENECA-2010SE37873

PATIENT
  Sex: Female

DRUGS (3)
  1. SEROQUEL [Suspect]
     Indication: ANXIETY
     Route: 048
  2. IMITREX [Interacting]
     Indication: MIGRAINE
     Route: 048
  3. SEROQUEL [Interacting]
     Indication: PANIC DISORDER
     Route: 048

REACTIONS (3)
  - MIGRAINE [None]
  - DRUG INTERACTION [None]
  - THERAPEUTIC RESPONSE UNEXPECTED [None]
